FAERS Safety Report 20804519 (Version 1)
Quarter: 2022Q2

REPORT INFORMATION
  Report Type: Spontaneous
  Country: US (occurrence: US)
  Receive Date: 20220509
  Receipt Date: 20220509
  Transmission Date: 20220720
  Serious: No
  Sender: FDA-Public Use
  Company Number: US-PFIZER INC-202200625060

PATIENT
  Age: 76 Year
  Sex: Female
  Weight: 68.3 kg

DRUGS (1)
  1. IBRANCE [Suspect]
     Active Substance: PALBOCICLIB
     Indication: Breast cancer female
     Dosage: 125 MG, CYCLIC (ONE TABLET FOR 3 WEEKS AND THEN OFF FOR ONE WEEK BY MOUTH)
     Route: 048
     Dates: start: 20220113

REACTIONS (1)
  - Fatigue [Not Recovered/Not Resolved]
